FAERS Safety Report 24827650 (Version 1)
Quarter: 2025Q1

REPORT INFORMATION
  Report Type: Report from Study
  Country: KR (occurrence: KR)
  Receive Date: 20250109
  Receipt Date: 20250109
  Transmission Date: 20250409
  Serious: Yes (Hospitalization, Other)
  Sender: JAZZ
  Company Number: KR-BR-2024-0233

PATIENT
  Age: 65 Year
  Sex: Female
  Weight: 57.8 kg

DRUGS (15)
  1. LURBINECTEDIN [Suspect]
     Active Substance: LURBINECTEDIN
     Indication: Small cell lung cancer
     Dosage: 3.2 MILLIGRAM/SQ. METER, Q3W
     Route: 042
     Dates: start: 20240814
  2. ZEMIGLO [Concomitant]
     Indication: Diabetes mellitus
     Route: 048
     Dates: start: 20230908
  3. MEGACE [Concomitant]
     Active Substance: MEGESTROL ACETATE
     Indication: Decreased appetite
     Dosage: 5 MILLILITER, QD
     Route: 048
     Dates: start: 20240407
  4. DIABEX [Concomitant]
     Active Substance: METFORMIN HYDROCHLORIDE
     Indication: Diabetes mellitus
     Route: 048
     Dates: start: 20240402
  5. NALOXONE HYDROCHLORIDE\OXYCODONE HYDROCHLORIDE [Concomitant]
     Active Substance: NALOXONE HYDROCHLORIDE\OXYCODONE HYDROCHLORIDE
     Indication: Pain prophylaxis
     Dosage: 1 DOSAGE FORM, QD
     Route: 048
     Dates: start: 20240402
  6. REPAGLINIDE [Concomitant]
     Active Substance: REPAGLINIDE
     Indication: Diabetes mellitus
     Dosage: 1 DOSAGE FORM, QD
     Route: 048
     Dates: start: 20240427
  7. CODAEWON FORTE [Concomitant]
     Indication: Small cell lung cancer
     Route: 048
     Dates: start: 20240402
  8. ANORO ELLIPTA [Concomitant]
     Active Substance: UMECLIDINIUM BROMIDE\VILANTEROL TRIFENATATE
     Indication: Small cell lung cancer
     Dosage: 1 DOSAGE FORM, QD
     Dates: start: 20240403
  9. ONDANT [Concomitant]
     Indication: Premedication
     Route: 048
     Dates: start: 20240814, end: 20240814
  10. ONDANT [Concomitant]
     Route: 048
     Dates: start: 20240905, end: 20240905
  11. DEXAHIGH [Concomitant]
     Indication: Premedication
     Dosage: 8 MILLIGRAM, QD
     Route: 048
     Dates: start: 20240814, end: 20240814
  12. DEXAHIGH [Concomitant]
     Dosage: 8 MILLIGRAM, QD
     Route: 048
     Dates: start: 20240905, end: 20240905
  13. APIDRA SOLOSTAR [Concomitant]
     Active Substance: INSULIN GLULISINE
     Indication: Diabetes mellitus
     Dosage: 4 DOSAGE FORM, QD
     Route: 058
     Dates: start: 20240815
  14. LEVEMIR [Concomitant]
     Active Substance: INSULIN DETEMIR
     Indication: Diabetes mellitus
     Dosage: 6 DOSAGE FORM, QD
     Route: 058
     Dates: start: 20240815
  15. ERDOKLE [Concomitant]
     Indication: Small cell lung cancer
     Dosage: 1 DOSAGE FORM, Q8H
     Route: 048
     Dates: start: 20240402

REACTIONS (1)
  - Febrile neutropenia [Not Recovered/Not Resolved]

NARRATIVE: CASE EVENT DATE: 20240910
